FAERS Safety Report 26086943 (Version 1)
Quarter: 2025Q4

REPORT INFORMATION
  Report Type: Spontaneous
  Country: EU (occurrence: EU)
  Receive Date: 20251125
  Receipt Date: 20251125
  Transmission Date: 20260117
  Serious: Yes (Other)
  Sender: RANBAXY
  Company Number: EU-SUN PHARMACEUTICAL INDUSTRIES LTD-2025R1-534214

PATIENT
  Age: 70 Year
  Sex: Male

DRUGS (1)
  1. WARFARIN [Suspect]
     Active Substance: WARFARIN
     Indication: Prosthetic cardiac valve thrombosis
     Dosage: UNK
     Route: 065

REACTIONS (1)
  - Cerebral amyloid angiopathy [Unknown]
